FAERS Safety Report 7699129-4 (Version None)
Quarter: 2011Q3

REPORT INFORMATION
  Report Type: 
  Country: None (occurrence: None)
  Receive Date: 20110819
  Receipt Date: 20110817
  Transmission Date: 20111222
  Serious: Yes (Other)
  Sender: FDA-Public Use
  Company Number: US-MERCK-1108USA00689

PATIENT
  Age: 80 Year
  Sex: Female

DRUGS (4)
  1. ZOCOR [Suspect]
     Indication: BLOOD CHOLESTEROL
     Route: 048
     Dates: start: 20100101
  2. ZOCOR [Suspect]
     Indication: CAROTID ARTERIOSCLEROSIS
     Route: 048
     Dates: start: 20100101
  3. PYRIDOXINE [Concomitant]
     Route: 065
  4. COUMADIN [Concomitant]
     Route: 065

REACTIONS (5)
  - RENAL DISORDER [None]
  - PAIN [None]
  - MUSCLE DISORDER [None]
  - MALAISE [None]
  - WRIST FRACTURE [None]
